FAERS Safety Report 8597276-6 (Version None)
Quarter: 2012Q3

REPORT INFORMATION
  Report Type: 
  Country: None (occurrence: None)
  Receive Date: 20120816
  Receipt Date: 20120727
  Transmission Date: 20120928
  Serious: No
  Sender: FDA-Public Use
  Company Number: US-BIOGENIDEC-2012BI030759

PATIENT
  Sex: Female

DRUGS (2)
  1. AMPYRA [Concomitant]
     Indication: GAIT DISTURBANCE
     Route: 048
     Dates: start: 20120715
  2. INTERFERON BETA-1A [Suspect]
     Indication: PRODUCT USED FOR UNKNOWN INDICATION
     Route: 030

REACTIONS (3)
  - FEELING ABNORMAL [None]
  - DIZZINESS [None]
  - HEADACHE [None]
